FAERS Safety Report 5907306-5 (Version None)
Quarter: 2008Q4

REPORT INFORMATION
  Report Type: 
  Country: None (occurrence: None)
  Receive Date: 20081003
  Receipt Date: 20080924
  Transmission Date: 20090506
  Serious: Yes (Other)
  Sender: FDA-Public Use
  Company Number: CA-JNJFOC-20080606924

PATIENT
  Sex: Female
  Weight: 63.6 kg

DRUGS (5)
  1. REMICADE [Suspect]
     Dosage: 6TH INFUSION
     Route: 042
  2. REMICADE [Suspect]
     Indication: CROHN'S DISEASE
     Dosage: 7TH INFUSION
     Route: 042
  3. BENADRYL [Concomitant]
     Indication: PREMEDICATION
     Route: 042
  4. TYLENOL (CAPLET) [Concomitant]
     Indication: PREMEDICATION
     Route: 048
  5. HYDROCORTISONE [Concomitant]
     Indication: PREMEDICATION

REACTIONS (1)
  - CATARACT OPERATION [None]
